FAERS Safety Report 6927048-7 (Version None)
Quarter: 2010Q3

REPORT INFORMATION
  Report Type: 
  Country: None (occurrence: None)
  Receive Date: 20100816
  Receipt Date: 20100727
  Transmission Date: 20110219
  Serious: No
  Sender: FDA-Public Use
  Company Number: US-ABBOTT-10P-163-0660322-00

PATIENT
  Sex: Male

DRUGS (3)
  1. SIMCOR [Suspect]
     Indication: HYPERLIPIDAEMIA
     Dosage: 500/20 ONE WEEK
     Dates: start: 20100501, end: 20100501
  2. SIMCOR [Suspect]
     Dosage: 500/20, AT NIGHT
  3. SIMCOR [Suspect]
     Dosage: 1000/20 AT NIGHT

REACTIONS (2)
  - FLUSHING [None]
  - MUSCLE DISORDER [None]
